FAERS Safety Report 25068789 (Version 4)
Quarter: 2025Q3

REPORT INFORMATION
  Report Type: Spontaneous
  Country: GB (occurrence: GB)
  Receive Date: 20250312
  Receipt Date: 20250807
  Transmission Date: 20251021
  Serious: No
  Sender: PFIZER
  Company Number: GB-PFIZER INC-PV202400159905

PATIENT
  Age: 22 Year
  Sex: Female

DRUGS (1)
  1. GENOTROPIN [Suspect]
     Active Substance: SOMATROPIN
     Indication: Hypopituitarism
     Dosage: 0.30 MG, 1X/DAY (OD)
     Route: 058
     Dates: start: 20240912

REACTIONS (3)
  - Poor quality device used [Unknown]
  - Device difficult to use [Unknown]
  - Device defective [Unknown]
